FAERS Safety Report 14918931 (Version 6)
Quarter: 2019Q1

REPORT INFORMATION
  Report Type: Spontaneous
  Country: CA (occurrence: CA)
  Receive Date: 20180521
  Receipt Date: 20190311
  Transmission Date: 20190417
  Serious: Yes (Other)
  Sender: FDA-Public Use
  Company Number: CA-CELLTRION INC.-2018CA019593

PATIENT

DRUGS (12)
  1. PREDNISONE. [Concomitant]
     Active Substance: PREDNISONE
     Dosage: UNK
     Dates: start: 201712
  2. SA [Concomitant]
     Dosage: UNK
  3. INFLECTRA [Suspect]
     Active Substance: INFLIXIMAB-DYYB
     Dosage: 400 MG, EVERY 8 WEEKS
     Route: 042
     Dates: start: 20180705, end: 20180705
  4. INFLECTRA [Suspect]
     Active Substance: INFLIXIMAB-DYYB
     Dosage: UNK
     Route: 042
     Dates: start: 20181122
  5. INFLECTRA [Suspect]
     Active Substance: INFLIXIMAB-DYYB
     Dosage: 400 MG, EVERY 4 WEEKS
     Route: 042
     Dates: start: 20181220
  6. INFLECTRA [Suspect]
     Active Substance: INFLIXIMAB-DYYB
     Dosage: 400 MG, WEEK 4
     Route: 042
     Dates: start: 20180510, end: 20180510
  7. INFLECTRA [Suspect]
     Active Substance: INFLIXIMAB-DYYB
     Dosage: 400 MG WEEK 1
     Route: 042
     Dates: start: 20180419, end: 20180419
  8. INFLECTRA [Suspect]
     Active Substance: INFLIXIMAB-DYYB
     Dosage: 400 MG, EVERY 4 WEEKS
     Route: 042
     Dates: start: 20180927, end: 20180927
  9. INFLECTRA [Suspect]
     Active Substance: INFLIXIMAB-DYYB
     Indication: COLITIS ULCERATIVE
     Dosage: 650 MG, WEEK 0
     Route: 042
     Dates: start: 20180413, end: 20180413
  10. INFLECTRA [Suspect]
     Active Substance: INFLIXIMAB-DYYB
     Dosage: 400 MG, EVERY 4 WEEKS
     Route: 042
     Dates: start: 20190117, end: 20190117
  11. INFLECTRA [Suspect]
     Active Substance: INFLIXIMAB-DYYB
     Dosage: 400 MG, EVERY 8 WEEKS
     Route: 042
     Dates: start: 20180830, end: 20180830
  12. INFLECTRA [Suspect]
     Active Substance: INFLIXIMAB-DYYB
     Dosage: 400 MG, EVERY 4 WEEKS
     Route: 042
     Dates: start: 20181025

REACTIONS (5)
  - Rectal haemorrhage [Recovered/Resolved]
  - Blood pressure fluctuation [Unknown]
  - Drug ineffective [Unknown]
  - Incorrect product administration duration [Unknown]
  - Product use issue [Unknown]

NARRATIVE: CASE EVENT DATE: 20180413
